FAERS Safety Report 6157581-X (Version None)
Quarter: 2009Q2

REPORT INFORMATION
  Report Type: 
  Country: None (occurrence: None)
  Receive Date: 20090414
  Receipt Date: 20090405
  Transmission Date: 20091009
  Serious: Yes (Other)
  Sender: FDA-Public Use
  Company Number: CHPA2009US08958

PATIENT
  Age: 48 Year
  Sex: Female

DRUGS (3)
  1. KERI ORIGINAL (NCH) (NO INGREDIENTS/SUBSTANCES) LOTION [Suspect]
     Indication: ECZEMA
     Dosage: BID, TOPICAL
     Route: 061
  2. ^CORTIZONE-10^ [Concomitant]
  3. ANTIHYPERTENSIVES (NO INGREDIENTS/SUBSTANCES) [Concomitant]

REACTIONS (1)
  - HYPERTENSION [None]
